FAERS Safety Report 9248001 (Version 2)
Quarter: 2014Q2

REPORT INFORMATION
  Report Type: Spontaneous
  Country: US (occurrence: US)
  Receive Date: 20130423
  Receipt Date: 20140410
  Transmission Date: 20141212
  Serious: Yes (Death)
  Sender: FDA-Public Use
  Company Number: US-PFIZER INC-2013123610

PATIENT
  Age: 63 Year
  Sex: Female

DRUGS (1)
  1. XALKORI [Suspect]
     Indication: TRACHEAL CANCER
     Dosage: 250 MG, 2X/DAY
     Route: 048
     Dates: start: 20120925

REACTIONS (3)
  - Death [Fatal]
  - Fatigue [Unknown]
  - Nausea [Unknown]
